FAERS Safety Report 25938024 (Version 1)
Quarter: 2025Q4

REPORT INFORMATION
  Report Type: Spontaneous
  Country: EU (occurrence: EU)
  Receive Date: 20251018
  Receipt Date: 20251018
  Transmission Date: 20260117
  Serious: Yes (Other)
  Sender: ACCORD
  Company Number: None

PATIENT
  Age: 69 Year
  Sex: Female
  Weight: 85 kg

DRUGS (2)
  1. PACLITAXEL [Suspect]
     Active Substance: PACLITAXEL
     Indication: Ascites
     Dosage: 3RD COURSE PXL/CDDP INFUSION, BSA: 1,94M SQ.
     Dates: start: 20211117
  2. CISPLATIN [Concomitant]
     Active Substance: CISPLATIN
     Dosage: 3RD COURSE PXL/CDDP INFUSION, BSA1,94MSQ.
     Dates: start: 20211117

REACTIONS (3)
  - Drug hypersensitivity [Recovered/Resolved]
  - Erythema [Recovered/Resolved]
  - Altered state of consciousness [Recovered/Resolved]

NARRATIVE: CASE EVENT DATE: 20211117
